FAERS Safety Report 5452188-1 (Version None)
Quarter: 2007Q3

REPORT INFORMATION
  Report Type: 
  Country: None (occurrence: None)
  Receive Date: 20070914
  Receipt Date: 20070907
  Transmission Date: 20080115
  Serious: Yes (Other)
  Sender: FDA-Public Use
  Company Number: PHBS2007RU12570

PATIENT
  Age: 50 Year
  Sex: Female

DRUGS (2)
  1. FAMVIR [Suspect]
     Indication: HERPES ZOSTER
  2. DETRALEX [Concomitant]

REACTIONS (5)
  - GAIT DISTURBANCE [None]
  - HERPES ZOSTER [None]
  - MUSCLE SPASMS [None]
  - OEDEMA PERIPHERAL [None]
  - PAIN IN EXTREMITY [None]
